FAERS Safety Report 23808977 (Version 2)
Quarter: 2024Q2

REPORT INFORMATION
  Report Type: Report from Study
  Country: IN (occurrence: IN)
  Receive Date: 20240502
  Receipt Date: 20240513
  Transmission Date: 20240716
  Serious: Yes (Other)
  Sender: FDA-Public Use
  Company Number: IN-GILEAD-2024-0671242

PATIENT
  Age: 61 Year
  Sex: Male

DRUGS (3)
  1. TENOFOVIR DISOPROXIL FUMARATE [Suspect]
     Active Substance: TENOFOVIR DISOPROXIL FUMARATE
     Indication: HIV infection
     Route: 065
  2. LAMIVUDINE [Concomitant]
     Active Substance: LAMIVUDINE
  3. EFAVIRENZ [Concomitant]
     Active Substance: EFAVIRENZ

REACTIONS (2)
  - Rhabdomyolysis [Unknown]
  - Acute kidney injury [Unknown]
